FAERS Safety Report 6852627-5 (Version None)
Quarter: 2010Q3

REPORT INFORMATION
  Report Type: 
  Country: None (occurrence: None)
  Receive Date: 20100717
  Receipt Date: 20080117
  Transmission Date: 20110219
  Serious: No
  Sender: FDA-Public Use
  Company Number: US-PFIZER INC-2007096970

PATIENT
  Sex: Female

DRUGS (1)
  1. CHANTIX [Suspect]

REACTIONS (9)
  - ABNORMAL DREAMS [None]
  - ABSTAINS FROM ALCOHOL [None]
  - AVERSION [None]
  - BRADYPHRENIA [None]
  - FLATULENCE [None]
  - INCORRECT DOSE ADMINISTERED [None]
  - NAUSEA [None]
  - SLEEP DISORDER [None]
  - WEIGHT INCREASED [None]
